FAERS Safety Report 8255127-3 (Version None)
Quarter: 2012Q1

REPORT INFORMATION
  Report Type: 
  Country: None (occurrence: None)
  Receive Date: 20120330
  Receipt Date: 20120314
  Transmission Date: 20120608
  Serious: Yes (Hospitalization)
  Sender: FDA-Public Use
  Company Number: 2012SP012287

PATIENT
  Age: 49 Year
  Sex: Female
  Weight: 71.6683 kg

DRUGS (29)
  1. RIBAVIRIN [Suspect]
     Indication: HEPATITIS C
     Dosage: 2 DF, QAM, UNK
     Dates: start: 20120304, end: 20120304
  2. RIBAVIRIN [Suspect]
     Indication: HEPATITIS C
     Dosage: 2 DF, QAM, UNK
     Dates: start: 20120111, end: 20120208
  3. RIBAVIRIN [Suspect]
     Indication: HEPATITIS C
     Dosage: 2 DF, QAM, UNK
     Dates: start: 20120228, end: 20120303
  4. RIBAVIRIN [Suspect]
     Indication: HEPATITIS C
     Dosage: 2 DF, QAM, UNK
     Dates: start: 20120304, end: 20120305
  5. RIBAVIRIN [Suspect]
     Indication: HEPATITIS C
     Dosage: 2 DF, QAM, UNK
     Dates: start: 20111214, end: 20120101
  6. RIBAVIRIN [Suspect]
     Indication: HEPATITIS C
     Dosage: 2 DF, QAM, UNK
     Dates: start: 20120209, end: 20120227
  7. RIBAVIRIN [Suspect]
     Indication: HEPATITIS C
     Dosage: 2 DF, QAM, UNK
     Dates: start: 20120228, end: 20120303
  8. RIBAVIRIN [Suspect]
     Indication: HEPATITIS C
     Dosage: 2 DF, QAM, UNK
     Dates: start: 20110921, end: 20111213
  9. RIBAVIRIN [Suspect]
     Indication: HEPATITIS C
     Dosage: 2 DF, QAM, UNK
     Dates: start: 20120102, end: 20120110
  10. SULFACETAMIDE SODIUM [Concomitant]
  11. TRIAMTERENE AND HYDROCHLOROTHIAZIDE [Concomitant]
  12. DILTIAZE [Concomitant]
  13. CEFTIN [Concomitant]
  14. POTASSIUM CHLORIDE [Concomitant]
  15. PEG-INTRON [Suspect]
     Indication: HEPATITIS C
     Dosage: 0.4 ML, UNK
     Dates: start: 20110921, end: 20111226
  16. PEG-INTRON [Suspect]
     Indication: HEPATITIS C
     Dosage: 0.4 ML, UNK
     Dates: start: 20120223, end: 20120223
  17. PEG-INTRON [Suspect]
     Indication: HEPATITIS C
     Dosage: 0.4 ML, UNK
     Dates: start: 20120202, end: 20120202
  18. PEG-INTRON [Suspect]
     Indication: HEPATITIS C
     Dosage: 0.4 ML, UNK
     Dates: start: 20120107, end: 20120125
  19. PEG-INTRON [Suspect]
     Indication: HEPATITIS C
     Dosage: 0.4 ML, UNK
     Dates: start: 20120213, end: 20120213
  20. PEG-INTRON [Suspect]
     Indication: HEPATITIS C
     Dosage: 0.4 ML, UNK
     Dates: start: 20120227, end: 20120227
  21. MK-5172 [Suspect]
     Indication: HEPATITIS C
     Dosage: 400 MG, QD
     Dates: start: 20110921, end: 20111213
  22. ALBUTEROL [Concomitant]
  23. PLACEBO [Suspect]
     Indication: HEPATITIS C
     Dosage: 2;12 DF, UNK
     Dates: start: 20120209, end: 20120227
  24. PLACEBO [Suspect]
     Indication: HEPATITIS C
     Dosage: 2;12 DF, UNK
     Dates: start: 20120305, end: 20120305
  25. PLACEBO [Suspect]
     Indication: HEPATITIS C
     Dosage: 2;12 DF, UNK
     Dates: start: 20110921, end: 20120102
  26. PLACEBO [Suspect]
     Indication: HEPATITIS C
     Dosage: 2;12 DF, UNK
     Dates: start: 20120228, end: 20120303
  27. PLACEBO [Suspect]
     Indication: HEPATITIS C
     Dosage: 2;12 DF, UNK
     Dates: start: 20120103, end: 20120108
  28. PLACEBO [Suspect]
     Indication: HEPATITIS C
     Dosage: 2;12 DF, UNK
     Dates: start: 20120304, end: 20120304
  29. FLUTICASONE FUROATE [Concomitant]

REACTIONS (13)
  - DEHYDRATION [None]
  - HYPOPHAGIA [None]
  - BLOOD PRESSURE DECREASED [None]
  - URINARY TRACT INFECTION [None]
  - RENAL FAILURE ACUTE [None]
  - GASTROENTERITIS [None]
  - HYPOKALAEMIA [None]
  - NAUSEA [None]
  - PROTEUS TEST POSITIVE [None]
  - LUNG NEOPLASM [None]
  - CONJUNCTIVITIS [None]
  - DECREASED APPETITE [None]
  - ANAEMIA [None]
